FAERS Safety Report 9256096 (Version 1)
Quarter: 2013Q2

REPORT INFORMATION
  Report Type: Spontaneous
  Country: US (occurrence: US)
  Receive Date: 20130425
  Receipt Date: 20130425
  Transmission Date: 20140414
  Serious: No
  Sender: FDA-Public Use
  Company Number: US-AMGEN-USASP2012035601

PATIENT
  Age: 80 Year
  Sex: Male

DRUGS (3)
  1. NEULASTA [Suspect]
     Indication: CHEMOTHERAPY
     Dosage: 6 MG, UNK
     Dates: start: 20120514
  2. CARBOPLATIN [Concomitant]
  3. ETOPOSIDE [Concomitant]

REACTIONS (2)
  - Neutropenia [Unknown]
  - Drug ineffective [Unknown]
